FAERS Safety Report 9199937 (Version 2)
Quarter: 2013Q2

REPORT INFORMATION
  Report Type: Spontaneous
  Country: US (occurrence: US)
  Receive Date: 20130329
  Receipt Date: 20130401
  Transmission Date: 20140414
  Serious: Yes (Death)
  Sender: FDA-Public Use
  Company Number: US-ROCHE-1208211

PATIENT
  Sex: Male

DRUGS (4)
  1. LUCENTIS [Suspect]
     Indication: DIABETIC RETINOPATHY
     Route: 050
     Dates: start: 20130325
  2. ZOLPIDEM [Concomitant]
  3. METFORMIN [Concomitant]
  4. LACTOSE [Concomitant]
     Route: 058

REACTIONS (1)
  - Death [Fatal]
